FAERS Safety Report 9517390 (Version 3)
Quarter: 2013Q4

REPORT INFORMATION
  Report Type: Spontaneous
  Country: US (occurrence: US)
  Receive Date: 20130911
  Receipt Date: 20131008
  Transmission Date: 20140711
  Serious: Yes (Other)
  Sender: FDA-Public Use
  Company Number: CHPA2013US013924

PATIENT
  Age: 28 Year
  Sex: Male

DRUGS (5)
  1. EXCEDRIN MIGRAINE [Suspect]
     Indication: TENSION HEADACHE
     Dosage: UNK, PRN
     Route: 048
  2. EXCEDRIN MIGRAINE [Suspect]
     Indication: MIGRAINE
  3. EXCEDRIN EXTRA STRENGTH [Suspect]
     Indication: MIGRAINE
     Dosage: UNK, PRN
     Route: 048
  4. EXCEDRIN EXTRA STRENGTH [Suspect]
     Indication: TENSION HEADACHE
  5. EXCEDRIN TENSION HEADACHE [Suspect]
     Indication: TENSION HEADACHE
     Dosage: UNK, PRN
     Route: 048

REACTIONS (8)
  - Temporomandibular joint syndrome [Not Recovered/Not Resolved]
  - Bruxism [Not Recovered/Not Resolved]
  - Headache [Not Recovered/Not Resolved]
  - Off label use [Unknown]
  - Inappropriate schedule of drug administration [Unknown]
  - Incorrect drug administration duration [Unknown]
  - Incorrect dose administered [Unknown]
  - Underdose [Unknown]
